FAERS Safety Report 7777316-4 (Version None)
Quarter: 2011Q3

REPORT INFORMATION
  Report Type: 
  Country: None (occurrence: None)
  Receive Date: 20110926
  Receipt Date: 20110919
  Transmission Date: 20111222
  Serious: Yes (Life-Threatening)
  Sender: FDA-Public Use
  Company Number: PHHY2011DE72706

PATIENT
  Sex: Female

DRUGS (6)
  1. INDAPAMIDE [Suspect]
     Dosage: 1 DF, QD
     Dates: start: 20090101, end: 20110701
  2. ACETYLSALICYLIC ACID SRT [Concomitant]
     Dosage: 1 DF, QD
     Route: 048
  3. PROPRANOLOL [Concomitant]
     Indication: ESSENTIAL TREMOR
     Dosage: 1 DF, TID
     Route: 048
     Dates: start: 20090101
  4. MAGNESIUM VERLA [Concomitant]
     Dosage: 1 DF, BID
     Route: 048
     Dates: start: 20090101
  5. RASILEZ [Suspect]
     Indication: HYPERTENSION
     Dosage: 1 DF, QD
     Route: 048
     Dates: start: 20110401, end: 20110701
  6. DURAGESIC-100 [Concomitant]
     Dosage: 12.5 UG, UNK
     Dates: start: 20110501

REACTIONS (4)
  - NEUROLOGICAL SYMPTOM [None]
  - BRAIN OEDEMA [None]
  - GENERAL PHYSICAL HEALTH DETERIORATION [None]
  - HYPONATRAEMIA [None]
